FAERS Safety Report 10406748 (Version 3)
Quarter: 2014Q4

REPORT INFORMATION
  Report Type: Spontaneous
  Country: DE (occurrence: DE)
  Receive Date: 20140825
  Receipt Date: 20141202
  Transmission Date: 20150528
  Serious: Yes (Death, Hospitalization, Other)
  Sender: FDA-Public Use
  Company Number: DE-009507513-1408DEU013820

PATIENT
  Age: 56 Year
  Sex: Female
  Weight: 80 kg

DRUGS (1)
  1. TEMODAL [Suspect]
     Active Substance: TEMOZOLOMIDE
     Indication: GLIOBLASTOMA
     Dosage: 140MG, QD (=75MG/M2 DAILY)
     Route: 048
     Dates: start: 20130228, end: 201303

REACTIONS (6)
  - Relapsing fever [Unknown]
  - Hepatic failure [Recovering/Resolving]
  - Death [Fatal]
  - Thrombocytopenia [Unknown]
  - Hepatitis [Unknown]
  - Hepatosplenomegaly [Unknown]

NARRATIVE: CASE EVENT DATE: 2013
